FAERS Safety Report 11695342 (Version 3)
Quarter: 2015Q4

REPORT INFORMATION
  Report Type: Spontaneous
  Country: US (occurrence: US)
  Receive Date: 20151103
  Receipt Date: 20151202
  Transmission Date: 20160304
  Serious: Yes (Hospitalization)
  Sender: FDA-Public Use
  Company Number: US-HOSPIRA-3059761

PATIENT
  Age: 79 Year
  Sex: Male
  Weight: 78.02 kg

DRUGS (10)
  1. AMINOPHYLLINE. [Suspect]
     Active Substance: AMINOPHYLLINE
     Indication: RETCHING
     Dosage: ONCE
     Route: 040
  2. COUMADIN [Concomitant]
     Active Substance: WARFARIN SODIUM
     Indication: ATRIAL FIBRILLATION
     Dosage: QPM
     Route: 048
  3. COLACE [Concomitant]
     Active Substance: DOCUSATE SODIUM
     Indication: CONSTIPATION
     Route: 048
  4. PEPCID                             /00305201/ [Concomitant]
     Active Substance: ALUMINUM HYDROXIDE\MAGNESIUM CARBONATE
     Indication: GASTROINTESTINAL DISORDER
     Dosage: Q 12 HOURS
     Route: 042
  5. LEXISCAN [Suspect]
     Active Substance: REGADENOSON
     Indication: PRODUCT USED FOR UNKNOWN INDICATION
     Route: 065
  6. CYMBALTA [Concomitant]
     Active Substance: DULOXETINE HYDROCHLORIDE
     Indication: DEPRESSION
     Dosage: QPM
     Route: 048
  7. METOPROLOL [Concomitant]
     Active Substance: METOPROLOL
     Indication: BLOOD PRESSURE MANAGEMENT
     Route: 048
  8. LASIX [Concomitant]
     Active Substance: FUROSEMIDE
     Indication: CARDIAC FAILURE CONGESTIVE
     Route: 048
  9. METOPROLOL [Concomitant]
     Active Substance: METOPROLOL
     Indication: CORONARY ARTERY DISEASE
     Route: 048
  10. AMINOPHYLLINE. [Suspect]
     Active Substance: AMINOPHYLLINE
     Indication: RETCHING
     Dosage: ONCE
     Route: 040

REACTIONS (9)
  - Tremor [Recovering/Resolving]
  - Chest pain [Recovering/Resolving]
  - Feeling abnormal [Recovering/Resolving]
  - Blood pressure decreased [Recovering/Resolving]
  - Hypoxia [Recovering/Resolving]
  - Heart rate increased [Recovering/Resolving]
  - Mental status changes [Recovering/Resolving]
  - Retching [Recovering/Resolving]
  - Vomiting [Recovering/Resolving]

NARRATIVE: CASE EVENT DATE: 20150828
